FAERS Safety Report 7473861-X (Version None)
Quarter: 2011Q2

REPORT INFORMATION
  Report Type: 
  Country: None (occurrence: None)
  Receive Date: 20110511
  Receipt Date: 20110325
  Transmission Date: 20111010
  Serious: Yes (Other)
  Sender: FDA-Public Use
  Company Number: US-BAYER-201038662NA

PATIENT
  Age: 32 Year
  Sex: Female
  Weight: 77.098 kg

DRUGS (1)
  1. YAZ [Suspect]
     Indication: CONTRACEPTION
     Dates: start: 20080101, end: 20090101

REACTIONS (5)
  - ABDOMINAL PAIN [None]
  - GALLBLADDER DISORDER [None]
  - GALLBLADDER INJURY [None]
  - FOCAL NODULAR HYPERPLASIA [None]
  - SPHINCTER OF ODDI DYSFUNCTION [None]
